FAERS Safety Report 18609666 (Version 2)
Quarter: 2021Q2

REPORT INFORMATION
  Report Type: Report from Study
  Country: US (occurrence: US)
  Receive Date: 20201214
  Receipt Date: 20210412
  Transmission Date: 20210717
  Serious: Yes (Other)
  Sender: FDA-Public Use
  Company Number: US-EMD SERONO-9162180

PATIENT
  Age: 50 Year
  Sex: Female

DRUGS (2)
  1. REBIF [Suspect]
     Active Substance: INTERFERON BETA-1A
     Indication: MULTIPLE SCLEROSIS
     Route: 058
     Dates: start: 20130623
  2. METFORMIN [Concomitant]
     Active Substance: METFORMIN HYDROCHLORIDE
     Indication: DIABETES MELLITUS

REACTIONS (10)
  - Constipation [Unknown]
  - Anal incontinence [Not Recovered/Not Resolved]
  - Tremor [Unknown]
  - Precancerous lesion of digestive tract [Unknown]
  - Abdominal distension [Unknown]
  - Abdominal pain [Unknown]
  - Balance disorder [Unknown]
  - Polyp [Unknown]
  - Dysuria [Unknown]
  - Gait disturbance [Not Recovered/Not Resolved]

NARRATIVE: CASE EVENT DATE: 2020
